FAERS Safety Report 13883081 (Version 1)
Quarter: 2017Q3

REPORT INFORMATION
  Report Type: Spontaneous
  Country: US (occurrence: US)
  Receive Date: 20170818
  Receipt Date: 20170818
  Transmission Date: 20171127
  Serious: No
  Sender: FDA-Public Use
  Company Number: GXBR2017US001432

PATIENT
  Age: 2 Year
  Sex: Male

DRUGS (1)
  1. CEFDINIR. [Suspect]
     Active Substance: CEFDINIR
     Indication: EAR INFECTION
     Route: 048

REACTIONS (6)
  - Inflammation [Unknown]
  - Blister [Unknown]
  - Eczema [Unknown]
  - Dermatitis diaper [Unknown]
  - Abdominal discomfort [Unknown]
  - Pruritus [Unknown]
